FAERS Safety Report 6033090-3 (Version None)
Quarter: 2009Q1

REPORT INFORMATION
  Report Type: 
  Country: None (occurrence: None)
  Receive Date: 20090109
  Receipt Date: 20081226
  Transmission Date: 20090719
  Serious: Yes (Hospitalization)
  Sender: FDA-Public Use
  Company Number: JP-BRISTOL-MYERS SQUIBB COMPANY-14459606

PATIENT
  Age: 70 Year
  Sex: Female
  Weight: 50 kg

DRUGS (2)
  1. ERBITUX [Suspect]
     Indication: COLON CANCER
     Dosage: 1ST INF:5NOV08,400MG/M2 1 IN 1 W 2ND:20NOV08,250MG/M2 1  IN 1 W 5TH:11DEC08
     Route: 042
     Dates: start: 20081211, end: 20081211
  2. VENA [Concomitant]
     Indication: PREMEDICATION
     Dosage: EVERY TIME BEFORE ERBITUX
     Route: 048

REACTIONS (1)
  - JAUNDICE CHOLESTATIC [None]
